FAERS Safety Report 8077025-0 (Version None)
Quarter: 2012Q1

REPORT INFORMATION
  Report Type: 
  Country: None (occurrence: None)
  Receive Date: 20120127
  Receipt Date: 20120118
  Transmission Date: 20120608
  Serious: Yes (Disabling, Other)
  Sender: FDA-Public Use
  Company Number: PHHY2012FR002961

PATIENT
  Sex: Female
  Weight: 85 kg

DRUGS (11)
  1. ANGIOTENSIN II ANTAGONISTS [Concomitant]
  2. RASILEZ [Suspect]
     Indication: HYPERTENSION
     Dosage: 1 DF
  3. RASILEZ [Suspect]
     Dosage: 300 MG
     Dates: start: 20110606, end: 20110701
  4. RASILEZ [Suspect]
     Dosage: 300 MG
     Dates: start: 20111125, end: 20111202
  5. MANIDIPINE [Concomitant]
     Dosage: 20 MG/DAY
     Route: 048
  6. ASPIRIN [Concomitant]
     Dosage: 75 MG/DAY
     Route: 048
  7. FUROSEMIDE [Concomitant]
     Dosage: 60 MG/DAY
     Route: 048
  8. LEVOTHYROXINE SODIUM [Concomitant]
     Dosage: 125 UG/DAY
     Route: 048
  9. INSULIN [Concomitant]
     Route: 058
  10. SIMVASTATIN [Concomitant]
     Dosage: 20 MG/DAY
     Route: 048
  11. RASILEZ [Suspect]
     Dosage: 150 MG
     Dates: start: 20111202, end: 20111216

REACTIONS (8)
  - RENAL FAILURE ACUTE [None]
  - BLOOD PRESSURE INCREASED [None]
  - BLOOD POTASSIUM INCREASED [None]
  - FACE OEDEMA [None]
  - BLOOD CREATININE INCREASED [None]
  - CARDIAC FAILURE [None]
  - PULMONARY OEDEMA [None]
  - OEDEMA PERIPHERAL [None]
